FAERS Safety Report 4973649-5 (Version None)
Quarter: 2006Q2

REPORT INFORMATION
  Report Type: 
  Country: None (occurrence: None)
  Receive Date: 20060414
  Receipt Date: 20051005
  Transmission Date: 20061013
  Serious: Yes (Hospitalization, Disabling)
  Sender: FDA-Public Use
  Company Number: US-MERCK-0510USA04521

PATIENT
  Age: 40 Year
  Sex: Female
  Weight: 110 kg

DRUGS (4)
  1. VIOXX [Suspect]
     Indication: PAIN
     Route: 048
     Dates: start: 20020101, end: 20040101
  2. VIOXX [Suspect]
     Indication: POLYARTHRITIS
     Route: 048
     Dates: start: 20020101, end: 20040101
  3. PREDNISONE [Concomitant]
     Route: 065
  4. CELLCEPT [Concomitant]
     Route: 065

REACTIONS (16)
  - ACCELERATED HYPERTENSION [None]
  - ANAEMIA [None]
  - CORONARY ARTERY DISEASE [None]
  - DEHYDRATION [None]
  - DIABETES MELLITUS [None]
  - DIABETIC KETOACIDOSIS [None]
  - HAEMORRHOIDS [None]
  - HYPERTENSION [None]
  - HYPOKALAEMIA [None]
  - HYPONATRAEMIA [None]
  - MUSCULOSKELETAL CHEST PAIN [None]
  - OVERDOSE [None]
  - RENAL FAILURE [None]
  - UPPER RESPIRATORY TRACT INFECTION [None]
  - UROSEPSIS [None]
  - WEIGHT DECREASED [None]
